FAERS Safety Report 9396291 (Version 1)
Quarter: 2013Q3

REPORT INFORMATION
  Report Type: Spontaneous
  Country: SE (occurrence: SE)
  Receive Date: 20130711
  Receipt Date: 20130711
  Transmission Date: 20140515
  Serious: Yes (Other)
  Sender: FDA-Public Use
  Company Number: SE-NICOBRDEVP-2013-06686

PATIENT
  Age: 38 Year
  Sex: Female

DRUGS (1)
  1. QUETIAPINE (UNKNOWN) [Suspect]
     Indication: PRODUCT USED FOR UNKNOWN INDICATION
     Dosage: UNK
     Route: 065

REACTIONS (2)
  - Tachycardia [Unknown]
  - Poisoning [Unknown]
